FAERS Safety Report 6237132-1 (Version None)
Quarter: 2009Q2

REPORT INFORMATION
  Report Type: 
  Country: None (occurrence: None)
  Receive Date: 20090619
  Receipt Date: 20090422
  Transmission Date: 20091009
  Serious: No
  Sender: FDA-Public Use
  Company Number: US-ASTRAZENECA-2009UW10077

PATIENT
  Age: 59 Year
  Sex: Female
  Weight: 88.5 kg

DRUGS (5)
  1. SYMBICORT [Suspect]
     Indication: ASTHMA
     Dosage: 2 PUFFS, 160/ 4.5 MCG
     Route: 055
  2. RHINOCORT [Concomitant]
     Indication: NASAL CONGESTION
  3. SYNTHROID [Concomitant]
     Indication: THYROID THERAPY
  4. NEXIUM [Concomitant]
  5. ZYRTEC [Concomitant]

REACTIONS (5)
  - ASTHMA [None]
  - DRUG INEFFECTIVE [None]
  - INCORRECT DOSE ADMINISTERED [None]
  - PRODUCT QUALITY ISSUE [None]
  - WHEEZING [None]
